FAERS Safety Report 5166630-7 (Version None)
Quarter: 2006Q4

REPORT INFORMATION
  Report Type: 
  Country: None (occurrence: None)
  Receive Date: 20061207
  Receipt Date: 20061115
  Transmission Date: 20070319
  Serious: Yes (Hospitalization)
  Sender: FDA-Public Use
  Company Number: HQWYE614215NOV06

PATIENT
  Sex: Female
  Weight: 79 kg

DRUGS (7)
  1. ETANERCEPT [Suspect]
     Indication: PSORIATIC ARTHROPATHY
     Route: 058
     Dates: start: 20061103
  2. ATENOLOL [Concomitant]
     Dosage: UNKNOWN
     Dates: start: 20060531
  3. INDOMETHACIN [Concomitant]
     Dosage: UNKNOWN
     Dates: start: 20060918
  4. CALCIUM [Concomitant]
     Indication: OSTEOPOROSIS
     Dosage: UNKNOWN
     Dates: start: 20050830
  5. RANITIDINE [Concomitant]
     Dosage: UNKNOWN
     Dates: start: 20040831
  6. FUROSEMIDE [Concomitant]
     Dosage: UNKNOWN
     Dates: start: 20061003
  7. RAMIPRIL [Concomitant]
     Indication: HYPERTENSION
     Dosage: UNKNOWN
     Dates: start: 20050426

REACTIONS (3)
  - CONDITION AGGRAVATED [None]
  - DRUG INEFFECTIVE [None]
  - PSORIASIS [None]
